FAERS Safety Report 14570201 (Version 13)
Quarter: 2020Q2

REPORT INFORMATION
  Report Type: Spontaneous
  Country: US (occurrence: US)
  Receive Date: 20180225
  Receipt Date: 20200401
  Transmission Date: 20200713
  Serious: No
  Sender: FDA-Public Use
  Company Number: US-BRISTOL-MYERS SQUIBB COMPANY-BMS-2018-017771

PATIENT
  Sex: Female
  Weight: 95.25 kg

DRUGS (1)
  1. ORENCIA [Suspect]
     Active Substance: ABATACEPT
     Indication: RHEUMATOID ARTHRITIS
     Dosage: 125 MG, QWK
     Route: 058
     Dates: start: 201605

REACTIONS (9)
  - Peripheral swelling [Unknown]
  - Pyrexia [Recovered/Resolved]
  - Headache [Unknown]
  - Gastroenteritis viral [Unknown]
  - Nasopharyngitis [Unknown]
  - Product dose omission [Unknown]
  - Sinusitis [Unknown]
  - Malaise [Recovering/Resolving]
  - Cough [Unknown]
